FAERS Safety Report 6901844-4 (Version None)
Quarter: 2010Q3

REPORT INFORMATION
  Report Type: 
  Country: None (occurrence: None)
  Receive Date: 20100802
  Receipt Date: 20100802
  Transmission Date: 20110219
  Serious: Yes (Other)
  Sender: FDA-Public Use
  Company Number: None

PATIENT
  Sex: Male
  Weight: 58.9676 kg

DRUGS (1)
  1. LYRICA [Suspect]
     Indication: NEURALGIA
     Dosage: ONE CAPSULE TWICE DAILY PO
     Route: 048
     Dates: start: 20100726, end: 20100726

REACTIONS (5)
  - DIZZINESS [None]
  - DYSARTHRIA [None]
  - MALAISE [None]
  - SOMNOLENCE [None]
  - VISION BLURRED [None]
